FAERS Safety Report 7049263-7 (Version None)
Quarter: 2010Q4

REPORT INFORMATION
  Report Type: 
  Country: None (occurrence: None)
  Receive Date: 20101018
  Receipt Date: 20101011
  Transmission Date: 20110411
  Serious: Yes (Death, Hospitalization)
  Sender: FDA-Public Use
  Company Number: IN-ROCHE-721699

PATIENT
  Sex: Male

DRUGS (15)
  1. MYCOPHENOLATE MOFETIL [Suspect]
     Route: 065
     Dates: start: 20100329, end: 20100709
  2. BELATACEPT [Suspect]
     Route: 042
     Dates: start: 20070528, end: 20100426
  3. WYSOLONE [Suspect]
     Route: 048
     Dates: start: 20100105, end: 20100709
  4. TACROLIMUS [Concomitant]
     Dates: start: 20100426, end: 20100709
  5. URIMAX [Concomitant]
     Dates: start: 20080204, end: 20100709
  6. LOSACOR [Concomitant]
     Dates: start: 20090818, end: 20100709
  7. METFORMIN [Concomitant]
     Dates: start: 20090331, end: 20100709
  8. FOLVITE [Concomitant]
     Dates: start: 20100329, end: 20100709
  9. IMDUR [Concomitant]
     Dates: start: 20070919, end: 20100709
  10. RAMACE [Concomitant]
     Dates: start: 20100105, end: 20100709
  11. NOVORAPID [Concomitant]
     Dates: start: 20081110, end: 20100709
  12. LEVEMIR [Concomitant]
  13. CARVEDILOL [Concomitant]
     Dosage: DRUG REPORTED AS: CARDIVAS
  14. SERTRALINE HYDROCHLORIDE [Concomitant]
     Dosage: DRUG: SERTA
  15. BECOZYME FORTE [Concomitant]

REACTIONS (4)
  - BRADYCARDIA [None]
  - CARDIAC ARREST [None]
  - SEPSIS [None]
  - TUBERCULOSIS [None]
